FAERS Safety Report 13934318 (Version 1)
Quarter: 2017Q3

REPORT INFORMATION
  Report Type: Spontaneous
  Country: US (occurrence: US)
  Receive Date: 20170905
  Receipt Date: 20170905
  Transmission Date: 20171127
  Serious: No
  Sender: FDA-Public Use
  Company Number: US-AUROBINDO-AUR-APL-2016-13805

PATIENT

DRUGS (1)
  1. OXYCODONE+ACETAMINOPHEN 7.5MG/325MG [Suspect]
     Active Substance: ACETAMINOPHEN\OXYCODONE HYDROCHLORIDE
     Indication: PAIN
     Dosage: UNK
     Route: 065
     Dates: start: 20161001

REACTIONS (5)
  - Pruritus [Unknown]
  - Drug effect incomplete [Unknown]
  - Erythema [Unknown]
  - Nausea [Unknown]
  - Product substitution issue [Unknown]
